FAERS Safety Report 4380800-7 (Version None)
Quarter: 2004Q2

REPORT INFORMATION
  Report Type: 
  Country: None (occurrence: None)
  Receive Date: 20040614
  Receipt Date: 20040602
  Transmission Date: 20050107
  Serious: Yes (Hospitalization)
  Sender: FDA-Public Use
  Company Number: 430012M04USA

PATIENT
  Age: 49 Year
  Sex: Male
  Weight: 74.8435 kg

DRUGS (1)
  1. NOVANTRONE [Suspect]
     Indication: MULTIPLE SCLEROSIS
     Dosage: OTHER, 1 IN 3 MONTHS, INTRAVENOUS
     Route: 042
     Dates: start: 20000306, end: 20020822

REACTIONS (2)
  - ACUTE PROMYELOCYTIC LEUKAEMIA [None]
  - CARDIAC DISORDER [None]
